FAERS Safety Report 24339277 (Version 2)
Quarter: 2025Q1

REPORT INFORMATION
  Report Type: Spontaneous
  Country: US (occurrence: US)
  Receive Date: 20240919
  Receipt Date: 20250222
  Transmission Date: 20250409
  Serious: No
  Sender: SANOFI AVENTIS
  Company Number: US-SA-2024SA265645

PATIENT
  Age: 93 Year
  Sex: Female

DRUGS (1)
  1. DUPIXENT [Suspect]
     Active Substance: DUPILUMAB
     Indication: Asthma
     Dosage: 300 MG, QOW
     Route: 058

REACTIONS (9)
  - Injection site pain [Unknown]
  - Back pain [Unknown]
  - Osteoporosis [Unknown]
  - Pain in extremity [Unknown]
  - Hyperventilation [Unknown]
  - Fatigue [Unknown]
  - Cough [Unknown]
  - Contusion [Unknown]
  - Pain [Unknown]
